FAERS Safety Report 19052107 (Version 1)
Quarter: 2021Q1

REPORT INFORMATION
  Report Type: Spontaneous
  Country: US (occurrence: US)
  Receive Date: 20210324
  Receipt Date: 20210324
  Transmission Date: 20210420
  Serious: No
  Sender: FDA-Public Use
  Company Number: US-ORGANON-2009USA008576

PATIENT
  Sex: Female

DRUGS (6)
  1. HERCEPTIN [Concomitant]
     Active Substance: TRASTUZUMAB
     Dosage: UNK
  2. AVASTIN [ATORVASTATIN CALCIUM] [Suspect]
     Active Substance: ATORVASTATIN CALCIUM
     Route: 048
  3. XELODA [Concomitant]
     Active Substance: CAPECITABINE
     Dosage: UNK
  4. CYMBALTA [Suspect]
     Active Substance: DULOXETINE HYDROCHLORIDE
     Route: 065
  5. PRINIVIL [Suspect]
     Active Substance: LISINOPRIL
  6. TUCATINIB [Suspect]
     Active Substance: TUCATINIB
     Indication: BREAST CANCER
     Dosage: UNK, BID WITH FOOD
     Route: 048

REACTIONS (33)
  - Abdominal pain [Unknown]
  - Nausea [Unknown]
  - Pruritus [Unknown]
  - Ulcer [Unknown]
  - Gastrointestinal disorder [Unknown]
  - Fungal infection [Unknown]
  - Rash [Unknown]
  - Arthropod bite [Unknown]
  - Abdominal pain upper [Unknown]
  - Vitamin D abnormal [Unknown]
  - Neuralgia [Unknown]
  - Taste disorder [Unknown]
  - Night sweats [Unknown]
  - Balance disorder [Unknown]
  - Stomatitis [Unknown]
  - Pain in extremity [Unknown]
  - Blood pressure increased [Unknown]
  - Cystitis [Unknown]
  - Gait disturbance [Unknown]
  - Diarrhoea [Unknown]
  - Headache [Unknown]
  - Pain [Unknown]
  - Abdominal pain lower [Unknown]
  - Haemorrhoids [Unknown]
  - Urinary tract infection [Unknown]
  - Fatigue [Unknown]
  - Vitamin D decreased [Unknown]
  - Unevaluable event [Unknown]
  - Platelet count decreased [Unknown]
  - Dehydration [Unknown]
  - Dry eye [Unknown]
  - Drug interaction [Unknown]
  - Dysgeusia [Unknown]
